FAERS Safety Report 13664180 (Version 2)
Quarter: 2017Q3

REPORT INFORMATION
  Report Type: Spontaneous
  Country: US (occurrence: US)
  Receive Date: 20170619
  Receipt Date: 20170711
  Transmission Date: 20171127
  Serious: Yes (Death)
  Sender: FDA-Public Use
  Company Number: US-PFIZER INC-2017175062

PATIENT
  Age: 82 Year
  Sex: Male
  Weight: 54 kg

DRUGS (13)
  1. LISINOPRIL. [Concomitant]
     Active Substance: LISINOPRIL
     Indication: HYPERTENSION
     Dosage: 1 DF, 2X/DAY (LISINOPRIL/HYDROCHLOROTHIAZIDE 20/12.5 MG TABLET)
     Route: 048
  2. SAW PALMETTO [Concomitant]
     Active Substance: HERBALS\SAW PALMETTO
     Dosage: 160 MG, 1X/DAY (IN THE MORNING)
     Route: 048
  3. MIRALAX [Concomitant]
     Active Substance: POLYETHYLENE GLYCOL 3350
     Dosage: 17 G, 1X/DAY (QD)
     Route: 048
  4. CELEBREX [Suspect]
     Active Substance: CELECOXIB
     Indication: PAIN
     Dosage: 200 MG, 1X/DAY
     Route: 048
     Dates: start: 20121228
  5. MEGESTROL ACETATE. [Concomitant]
     Active Substance: MEGESTROL ACETATE
     Dosage: 10 ML, 1X/DAY (10 CC QD)
     Route: 048
     Dates: start: 20150727
  6. ASPIRIN. [Concomitant]
     Active Substance: ASPIRIN
     Indication: ATRIAL FIBRILLATION
     Dosage: 81 MG, 1X/DAY (1 QD)
     Route: 048
  7. DEPO-MEDROL [Concomitant]
     Active Substance: METHYLPREDNISOLONE ACETATE
     Dosage: 1 ML, EVERY 3 MONTHS
     Route: 030
  8. BILBERRY [Concomitant]
     Active Substance: BILBERRY
     Dosage: 320 MG, 1X/DAY
  9. CELEBREX [Suspect]
     Active Substance: CELECOXIB
     Indication: ARTHRITIS
     Dosage: 200 MG, 2X/DAY
  10. LISINOPRIL AND HYDROCHLOROTHIAZIDE [Concomitant]
     Active Substance: HYDROCHLOROTHIAZIDE\LISINOPRIL
     Dosage: 1 DF, 2X/DAY [HYDROCHLOROTHIAZIDE 12.5 MG]/[LISINOPRIL 20 MG]
     Route: 048
     Dates: start: 20160502
  11. MELATONIN [Concomitant]
     Active Substance: MELATONIN
     Dosage: 10 MG, UNK
  12. VITAMIN B12 [Concomitant]
     Active Substance: CYANOCOBALAMIN
     Dosage: 1 ML, MONTHLY (1000 MCG/ML; 1 CC Q MONTHLY)
     Route: 030
  13. ATORVASTATIN CALCIUM. [Concomitant]
     Active Substance: ATORVASTATIN CALCIUM
     Dosage: 10 MG, 1X/DAY (1 Q DINNER)
     Route: 048
     Dates: start: 20140810

REACTIONS (2)
  - Intentional product use issue [Unknown]
  - Renal disorder [Fatal]
